FAERS Safety Report 11235971 (Version 1)
Quarter: 2015Q3

REPORT INFORMATION
  Report Type: Spontaneous
  Country: JP (occurrence: JP)
  Receive Date: 20150702
  Receipt Date: 20150702
  Transmission Date: 20151125
  Serious: Yes (Life-Threatening)
  Sender: FDA-Public Use
  Company Number: JP-MALLINCKRODT-T201503269

PATIENT
  Age: 60 Year
  Sex: Female
  Weight: 46 kg

DRUGS (41)
  1. ZANTAC [Concomitant]
     Active Substance: RANITIDINE HYDROCHLORIDE
     Dosage: 100 MG
     Route: 051
     Dates: start: 20150508
  2. ZYPREXA [Concomitant]
     Active Substance: OLANZAPINE
     Dosage: 2.5 MG
     Route: 048
     Dates: end: 20150420
  3. RINDERON V [Concomitant]
     Active Substance: BETAMETHASONE VALERATE
     Dosage: 4 MG
     Route: 048
     Dates: start: 20150422, end: 20150424
  4. MORPHINE HYDROCHLORIDE [Concomitant]
     Active Substance: MORPHINE HYDROCHLORIDE
     Dosage: 2 MG
     Route: 029
     Dates: start: 20150508, end: 20150518
  5. KETALAR [Concomitant]
     Active Substance: KETAMINE HYDROCHLORIDE
     Dosage: 144 MG
     Route: 042
     Dates: start: 20150507
  6. ALOSENN [Concomitant]
     Active Substance: SENNA LEAF
     Dosage: 0.5 G
     Route: 048
     Dates: end: 20150419
  7. RINDERON V [Concomitant]
     Active Substance: BETAMETHASONE VALERATE
     Dosage: 4 MG
     Route: 051
     Dates: end: 20150421
  8. OLIVES [Concomitant]
     Dosage: 720 MG
     Route: 051
     Dates: start: 20150515, end: 20150518
  9. METHADONE [Suspect]
     Active Substance: METHADONE HYDROCHLORIDE
     Indication: CANCER PAIN
     Dosage: 10 MG (30 MG DAILY DOSE)
     Route: 048
     Dates: start: 20150414, end: 20150421
  10. TAKEPRON [Concomitant]
     Active Substance: LANSOPRAZOLE
     Dosage: 15 MG
     Route: 048
     Dates: end: 20150507
  11. LYRICA [Concomitant]
     Active Substance: PREGABALIN
     Dosage: 300 MG
     Route: 048
     Dates: start: 20150422, end: 20150423
  12. LYRICA [Concomitant]
     Active Substance: PREGABALIN
     Dosage: 75 MG
     Route: 048
     Dates: start: 20150501, end: 20150513
  13. ROPION [Concomitant]
     Active Substance: FLURBIPROFEN AXETIL
     Dosage: 150 MG
     Route: 051
     Dates: start: 20150511
  14. METHADONE [Suspect]
     Active Substance: METHADONE HYDROCHLORIDE
     Dosage: 10 MG (30 MG DAILY DOSE)
     Route: 048
     Dates: start: 20150430, end: 20150508
  15. METHADONE [Suspect]
     Active Substance: METHADONE HYDROCHLORIDE
     Dosage: 5 MG (15 MG DAILY DOSE)
     Route: 048
     Dates: start: 20150509, end: 20150513
  16. MAGNESIUM OXIDE. [Concomitant]
     Active Substance: MAGNESIUM OXIDE
     Dosage: 1980 MG
     Route: 048
     Dates: end: 20150513
  17. REMERON [Concomitant]
     Active Substance: MIRTAZAPINE
     Dosage: 15 MG
     Route: 048
     Dates: end: 20150513
  18. TSUMURA CHOREITO [Concomitant]
     Active Substance: UNSPECIFIED INGREDIENT
     Dosage: 18 G
     Route: 048
     Dates: end: 20150420
  19. LYRICA [Concomitant]
     Active Substance: PREGABALIN
     Dosage: 150 MG
     Route: 048
     Dates: start: 20150424, end: 20150427
  20. OLIVES [Concomitant]
     Dosage: 960 MG
     Route: 051
     Dates: start: 20150519, end: 20150519
  21. XYLOCAINE [Concomitant]
     Active Substance: LIDOCAINE HYDROCHLORIDE
     Dosage: 240 MG
     Route: 029
     Dates: start: 20150508, end: 20150519
  22. KETALAR [Concomitant]
     Active Substance: KETAMINE HYDROCHLORIDE
     Dosage: PRN, 20 MG
     Route: 042
     Dates: start: 20150413
  23. OXINORM [Concomitant]
     Active Substance: OXYCODONE HYDROCHLORIDE
     Dosage: PRN, 20 MG
     Route: 048
     Dates: start: 20140416
  24. GABAPEN [Concomitant]
     Active Substance: GABAPENTIN
     Dosage: 600 MG
     Route: 048
     Dates: end: 20150410
  25. LYRICA [Concomitant]
     Active Substance: PREGABALIN
     Dosage: 50 MG
     Route: 048
     Dates: start: 20150428, end: 20150430
  26. SENNOSIDE [Concomitant]
     Active Substance: SENNOSIDES
     Dosage: 24 MG
     Route: 048
     Dates: start: 20150420, end: 20150513
  27. ZOPICLONE [Concomitant]
     Active Substance: ZOPICLONE
     Dosage: 7.5 MG
     Route: 048
     Dates: start: 20150427, end: 20150506
  28. TRYPTANOL [Concomitant]
     Active Substance: AMITRIPTYLINE
     Dosage: 50 MG
     Route: 048
     Dates: start: 20150527
  29. LOXONIN [Concomitant]
     Active Substance: LOXOPROFEN SODIUM
     Dosage: 180 MG
     Route: 048
     Dates: end: 20150420
  30. FLUNITRAZEPAM [Concomitant]
     Active Substance: FLUNITRAZEPAM
     Dosage: 2 MG
     Route: 048
     Dates: end: 20150513
  31. RINDERON V [Concomitant]
     Active Substance: BETAMETHASONE VALERATE
     Dosage: 3 MG
     Route: 048
     Dates: start: 20150425, end: 20150507
  32. CEROCRAL [Concomitant]
     Active Substance: IFENPRODIL
     Dosage: 120 MG
     Route: 048
     Dates: start: 20150421, end: 20150506
  33. CEFAZOLIN [Concomitant]
     Active Substance: CEFAZOLIN
     Dosage: 2 G
     Route: 051
     Dates: start: 20150508, end: 20150519
  34. METHADONE [Suspect]
     Active Substance: METHADONE HYDROCHLORIDE
     Dosage: (25 MG DAILY DOSE)
     Route: 048
     Dates: start: 20150422, end: 20150429
  35. LYRICA [Concomitant]
     Active Substance: PREGABALIN
     Dosage: 450 MG
     Route: 048
     Dates: end: 20150421
  36. RINDERON V [Concomitant]
     Active Substance: BETAMETHASONE VALERATE
     Dosage: 4 MG
     Route: 051
     Dates: start: 20150508
  37. OLIVES [Concomitant]
     Dosage: 480 MG
     Route: 051
     Dates: start: 20150504, end: 20150514
  38. OLIVES [Concomitant]
     Dosage: 1200 MG
     Route: 051
     Dates: start: 20150520
  39. TRYPTANOL [Concomitant]
     Active Substance: AMITRIPTYLINE
     Dosage: 30 MG
     Route: 048
     Dates: start: 20150519, end: 20150526
  40. KETALAR [Concomitant]
     Active Substance: KETAMINE HYDROCHLORIDE
     Dosage: 48 MG
     Route: 042
     Dates: start: 20150504, end: 20150504
  41. KETALAR [Concomitant]
     Active Substance: KETAMINE HYDROCHLORIDE
     Dosage: 96 MG
     Route: 042
     Dates: start: 20150505, end: 20150506

REACTIONS (6)
  - Hypoaesthesia [Recovering/Resolving]
  - Blood urea increased [Recovered/Resolved]
  - Insomnia [Not Recovered/Not Resolved]
  - Hypocalcaemia [Recovering/Resolving]
  - White blood cell count increased [Recovered/Resolved]
  - Somnolence [Recovering/Resolving]

NARRATIVE: CASE EVENT DATE: 20150420
